FAERS Safety Report 9657996 (Version 2)
Quarter: 2013Q4

REPORT INFORMATION
  Report Type: Spontaneous
  Country: FR (occurrence: FR)
  Receive Date: 20131030
  Receipt Date: 20131211
  Transmission Date: 20140711
  Serious: Yes (Life-Threatening, Other)
  Sender: FDA-Public Use
  Company Number: FR-GILEAD-2013-0086505

PATIENT
  Age: 43 Year
  Sex: Male

DRUGS (8)
  1. AMBRISENTAN [Suspect]
     Indication: PULMONARY ARTERIAL HYPERTENSION
     Dosage: 5MG PER DAY
     Route: 048
     Dates: start: 201308, end: 20130920
  2. KIVEXA [Concomitant]
     Indication: HIV INFECTION
     Dosage: 1TAB PER DAY
     Route: 048
  3. KIVEXA [Concomitant]
     Dosage: 1TAB PER DAY
     Route: 048
     Dates: start: 201308
  4. NORVIR [Concomitant]
     Indication: HIV INFECTION
     Dosage: 100MG PER DAY
     Route: 048
     Dates: start: 201308
  5. PREZISTA [Concomitant]
     Indication: HIV INFECTION
     Dosage: 800MG PER DAY
     Route: 048
     Dates: start: 201308
  6. SKENAN [Concomitant]
     Indication: PRODUCT USED FOR UNKNOWN INDICATION
     Dosage: 100MG PER DAY
     Route: 048
     Dates: start: 201309
  7. PENTACARINAT [Concomitant]
     Indication: PRODUCT USED FOR UNKNOWN INDICATION
     Route: 048
     Dates: start: 201301
  8. AUGMENTIN                          /00756801/ [Concomitant]
     Indication: OTITIS MEDIA ACUTE
     Dosage: 1G THREE TIMES PER DAY
     Route: 065
     Dates: start: 20130826, end: 20130901

REACTIONS (2)
  - Pancytopenia [Recovered/Resolved]
  - Condition aggravated [Recovered/Resolved]
